FAERS Safety Report 6402322-1 (Version None)
Quarter: 2009Q4

REPORT INFORMATION
  Report Type: 
  Country: None (occurrence: None)
  Receive Date: 20091013
  Receipt Date: 20090922
  Transmission Date: 20100525
  Serious: Yes (Other)
  Sender: FDA-Public Use
  Company Number: 2009SP026429

PATIENT
  Sex: Male

DRUGS (3)
  1. REMERON [Suspect]
     Indication: MENTAL DISORDER
     Dosage: 0.5 DF;BID
     Dates: start: 20010101
  2. REMERON [Suspect]
     Indication: PANIC ATTACK
     Dosage: 0.5 DF;BID
     Dates: start: 20010101
  3. PREDNISONE  /00044702/ [Concomitant]

REACTIONS (11)
  - AGEUSIA [None]
  - CHILLS [None]
  - DEAFNESS [None]
  - EAR PAIN [None]
  - EYE PAIN [None]
  - HYPERHIDROSIS [None]
  - NAUSEA [None]
  - PYREXIA [None]
  - SALIVARY HYPERSECRETION [None]
  - SINUSITIS [None]
  - VOMITING [None]
